FAERS Safety Report 9203397 (Version 4)
Quarter: 2014Q1

REPORT INFORMATION
  Report Type: Spontaneous
  Country: GB (occurrence: GB)
  Receive Date: 20130402
  Receipt Date: 20140315
  Transmission Date: 20141002
  Serious: Yes (Death, Other)
  Sender: FDA-Public Use
  Company Number: GB-009507513-1303GBR014237

PATIENT
  Age: 87 Year
  Sex: Male
  Weight: 68 kg

DRUGS (6)
  1. SIMVASTATIN [Suspect]
     Indication: HYPERCHOLESTEROLAEMIA
     Dosage: 40 MG, QD
     Route: 048
     Dates: start: 20130211, end: 20130218
  2. FUSIDIC ACID [Suspect]
     Indication: OSTEOMYELITIS
     Dosage: 500 MG, TID
     Route: 048
     Dates: start: 20121220, end: 20130211
  3. CLARITHROMYCIN [Suspect]
     Indication: OSTEOMYELITIS
     Dosage: 500 MG, BID
     Route: 048
     Dates: start: 20121101, end: 20130211
  4. ASPIRIN [Concomitant]
     Route: 048
  5. LANSOPRAZOLE [Concomitant]
  6. LANTUS [Concomitant]

REACTIONS (6)
  - Rhabdomyolysis [Fatal]
  - Sepsis [Not Recovered/Not Resolved]
  - Renal failure acute [Not Recovered/Not Resolved]
  - Incorrect drug administration duration [Not Recovered/Not Resolved]
  - Labelled drug-drug interaction medication error [Not Recovered/Not Resolved]
  - Medication error [Not Recovered/Not Resolved]
